FAERS Safety Report 6031254-6 (Version None)
Quarter: 2009Q1

REPORT INFORMATION
  Report Type: 
  Country: None (occurrence: None)
  Receive Date: 20090108
  Receipt Date: 20081231
  Transmission Date: 20090719
  Serious: Yes (Hospitalization)
  Sender: FDA-Public Use
  Company Number: US-BIOGENIDEC-2008BI014602

PATIENT
  Age: 49 Year
  Sex: Female

DRUGS (1)
  1. AVONEX [Suspect]
     Indication: MULTIPLE SCLEROSIS
     Route: 030
     Dates: start: 20060301

REACTIONS (4)
  - DEEP VEIN THROMBOSIS [None]
  - MULTIPLE SCLEROSIS RELAPSE [None]
  - PULMONARY EMBOLISM [None]
  - URINARY TRACT INFECTION [None]
